FAERS Safety Report 9965987 (Version 1)
Quarter: 2014Q1

REPORT INFORMATION
  Report Type: Report from Study
  Country: US (occurrence: US)
  Receive Date: 20140305
  Receipt Date: 20140305
  Transmission Date: 20141002
  Serious: No
  Sender: FDA-Public Use
  Company Number: US-ABBVIE-13P-163-1127238-00

PATIENT
  Age: 70 Year
  Sex: Female

DRUGS (6)
  1. HUMIRA [Suspect]
     Indication: COLITIS ULCERATIVE
     Dates: start: 20130628
  2. LIPITOR [Concomitant]
     Indication: BLOOD CHOLESTEROL
  3. PAXIL [Concomitant]
     Indication: ANXIETY
  4. KLONOPIN [Concomitant]
     Indication: MUSCLE SPASMS
  5. CALCIUM D [Concomitant]
     Indication: VITAMIN SUPPLEMENTATION
  6. VITAMIN B-12 [Concomitant]
     Indication: VITAMIN SUPPLEMENTATION

REACTIONS (1)
  - Drug ineffective [Not Recovered/Not Resolved]
